FAERS Safety Report 5688376-9 (Version None)
Quarter: 2008Q1

REPORT INFORMATION
  Report Type: 
  Country: None (occurrence: None)
  Receive Date: 20080331
  Receipt Date: 20080320
  Transmission Date: 20080703
  Serious: No
  Sender: FDA-Public Use
  Company Number: DE-BAXTER-2008BH002095

PATIENT
  Age: 73 Year
  Sex: Female
  Weight: 87 kg

DRUGS (6)
  1. GAMMAGARD LIQUID [Suspect]
     Indication: MYASTHENIC SYNDROME
     Route: 042
     Dates: start: 20080128, end: 20080128
  2. GAMMAGARD [Suspect]
     Indication: MYASTHENIC SYNDROME
     Dosage: DOSE UNIT:UNKNOWN
     Route: 065
     Dates: start: 20080128, end: 20080128
  3. MESTINON [Concomitant]
  4. DIAMINO-PYRIDIN [Concomitant]
  5. TORSEMIDE [Concomitant]
  6. L-THYROXIN ^HENNING BERLIN^ [Concomitant]

REACTIONS (3)
  - BLOOD PRESSURE INCREASED [None]
  - DYSPNOEA [None]
  - HYPERSENSITIVITY [None]
